FAERS Safety Report 20745252 (Version 1)
Quarter: 2022Q2

REPORT INFORMATION
  Report Type: Spontaneous
  Country: US (occurrence: None)
  Receive Date: 20220422
  Receipt Date: 20220422
  Transmission Date: 20220720
  Serious: Yes (Hospitalization)
  Sender: FDA-Public Use
  Company Number: None

PATIENT
  Age: 51 Year
  Sex: Female
  Weight: 108.7 kg

DRUGS (16)
  1. OTEZLA [Suspect]
     Active Substance: APREMILAST
     Indication: Psoriatic arthropathy
     Dosage: FREQUENCY : TWICE A DAY;?
     Route: 048
     Dates: end: 20220322
  2. ALBUTEROL [Concomitant]
     Active Substance: ALBUTEROL
  3. ALPRAZOLAM [Concomitant]
     Active Substance: ALPRAZOLAM
  4. AMPHETAMINE\DEXTROAMPHETAMINE [Concomitant]
     Active Substance: AMPHETAMINE\DEXTROAMPHETAMINE
  5. ARIPIPRAZOLE [Concomitant]
     Active Substance: ARIPIPRAZOLE
  6. ATORVASTATIN [Concomitant]
     Active Substance: ATORVASTATIN
  7. CIMETIDINE [Concomitant]
     Active Substance: CIMETIDINE
  8. FLUTICASONE [Concomitant]
     Active Substance: FLUTICASONE
  9. fluticasone/umclidinium/vilaterol [Concomitant]
  10. FUROSEMIDE [Concomitant]
     Active Substance: FUROSEMIDE
  11. LEVALBUTEROL [Concomitant]
     Active Substance: LEVALBUTEROL
  12. OXYCODONE [Concomitant]
     Active Substance: OXYCODONE
  13. POTASSIUM CHLORIDE [Concomitant]
     Active Substance: POTASSIUM CHLORIDE
  14. VENLAFAXINE [Concomitant]
     Active Substance: VENLAFAXINE HYDROCHLORIDE
  15. tacrolimus topical [Concomitant]
  16. triamcinolone topical [Concomitant]

REACTIONS (21)
  - Pneumonia bacterial [None]
  - Pneumonia escherichia [None]
  - Pulmonary alveolar haemorrhage [None]
  - Pneumothorax [None]
  - Acute respiratory failure [None]
  - Procalcitonin decreased [None]
  - Lung infiltration [None]
  - Hypervolaemia [None]
  - Pneumonia viral [None]
  - Pneumonia fungal [None]
  - Organising pneumonia [None]
  - Ascites [None]
  - Lung consolidation [None]
  - Hepatic steatosis [None]
  - Cholelithiasis [None]
  - Cholelithiasis [None]
  - Pyrexia [None]
  - Complement factor C3 decreased [None]
  - Procedural failure [None]
  - Left ventricular end-diastolic pressure increased [None]
  - Acute respiratory failure [None]

NARRATIVE: CASE EVENT DATE: 20220322
